FAERS Safety Report 4679392-4 (Version None)
Quarter: 2005Q2

REPORT INFORMATION
  Report Type: 
  Country: None (occurrence: None)
  Receive Date: 20050602
  Receipt Date: 20050526
  Transmission Date: 20051028
  Serious: Yes (Hospitalization)
  Sender: FDA-Public Use
  Company Number: DE-GLAXOSMITHKLINE-D0046690A

PATIENT
  Age: 56 Year
  Sex: Female
  Weight: 53 kg

DRUGS (2)
  1. IMIGRAN [Suspect]
     Dosage: 100MG UNKNOWN
     Route: 048
  2. MOCLOBEMID [Suspect]
     Dosage: 150MG UNKNOWN
     Route: 048

REACTIONS (2)
  - MEDICATION ERROR [None]
  - SOMNOLENCE [None]
